FAERS Safety Report 9380929 (Version 1)
Quarter: 2013Q3

REPORT INFORMATION
  Report Type: Spontaneous
  Country: KR (occurrence: KR)
  Receive Date: 20130703
  Receipt Date: 20130703
  Transmission Date: 20140515
  Serious: Yes (Hospitalization)
  Sender: FDA-Public Use
  Company Number: KR-JNJFOC-20130614275

PATIENT
  Age: 2 Month
  Sex: Male
  Weight: 9 kg

DRUGS (1)
  1. CHILDREN^S TYLENOL [Suspect]
     Indication: PYREXIA
     Dosage: ONE TO TWO TIMES A DAY
     Route: 048
     Dates: start: 20130421

REACTIONS (7)
  - Drug ineffective [Unknown]
  - Asthenia [Recovered/Resolved]
  - Incorrect dose administered [Unknown]
  - Vomiting [Recovered/Resolved]
  - Cough [Recovered/Resolved]
  - Hypophagia [Recovered/Resolved]
  - Hepatic enzyme increased [Recovered/Resolved]
